FAERS Safety Report 9199461 (Version 1)
Quarter: 2013Q1

REPORT INFORMATION
  Report Type: Spontaneous
  Country: US (occurrence: US)
  Receive Date: 20130329
  Receipt Date: 20130329
  Transmission Date: 20140127
  Serious: No
  Sender: FDA-Public Use
  Company Number: US-PFIZER INC-2013101561

PATIENT
  Age: 37 Year
  Sex: Male
  Weight: 126.98 kg

DRUGS (4)
  1. XANAX [Suspect]
     Indication: ANXIETY
     Dosage: 0.5 MG, AS NEEDED
     Route: 048
     Dates: start: 2010
  2. LISINOPRIL W/HYDROCHLOROTHIAZIDE [Concomitant]
     Indication: HYPERTENSION
     Dosage: UNK
  3. ATENOLOL [Concomitant]
     Dosage: UNK
  4. LIPITOR [Concomitant]
     Dosage: UNK

REACTIONS (1)
  - Tachycardia [Unknown]
